FAERS Safety Report 9345939 (Version 1)
Quarter: 2013Q2

REPORT INFORMATION
  Report Type: Spontaneous
  Country: US (occurrence: US)
  Receive Date: 20130613
  Receipt Date: 20130613
  Transmission Date: 20140414
  Serious: No
  Sender: FDA-Public Use
  Company Number: US-BAYER-2013-070893

PATIENT
  Age: 61 Year
  Sex: Male

DRUGS (2)
  1. GADAVIST [Suspect]
     Indication: NUCLEAR MAGNETIC RESONANCE IMAGING ABDOMINAL
     Dosage: 7.5 ML, ONCE
     Dates: start: 20130607, end: 20130607
  2. GADAVIST [Suspect]
     Indication: HEPATOCELLULAR CARCINOMA
     Dosage: 7.5 ML, ONCE
     Dates: start: 20130607, end: 20130607

REACTIONS (1)
  - Pain [None]
